FAERS Safety Report 24394085 (Version 2)
Quarter: 2024Q4

REPORT INFORMATION
  Report Type: Report from Study
  Country: US (occurrence: US)
  Receive Date: 20241003
  Receipt Date: 20241007
  Transmission Date: 20250115
  Serious: Yes (Hospitalization)
  Sender: ABBVIE
  Company Number: US-ABBVIE-5946578

PATIENT
  Age: 62 Year
  Sex: Female
  Weight: 71.667 kg

DRUGS (2)
  1. RINVOQ [Suspect]
     Active Substance: UPADACITINIB
     Indication: Rheumatoid arthritis
     Route: 048
     Dates: start: 20230721
  2. ASPIRIN [Concomitant]
     Active Substance: ASPIRIN
     Indication: Anticoagulant therapy
     Route: 048

REACTIONS (6)
  - Pain in extremity [Recovering/Resolving]
  - Therapeutic response unexpected [Unknown]
  - Pre-existing condition improved [Unknown]
  - Gait inability [Recovered/Resolved]
  - Inflammatory marker increased [Not Recovered/Not Resolved]
  - Rheumatoid arthritis [Unknown]

NARRATIVE: CASE EVENT DATE: 20240801
